FAERS Safety Report 9240313 (Version 1)
Quarter: 2013Q2

REPORT INFORMATION
  Report Type: Spontaneous
  Country: DE (occurrence: DE)
  Receive Date: 20130418
  Receipt Date: 20130418
  Transmission Date: 20140414
  Serious: Yes (Other)
  Sender: FDA-Public Use
  Company Number: DE-BAUSCH-BL-2013-000305

PATIENT
  Age: 54 Year
  Sex: Male
  Weight: 110 kg

DRUGS (5)
  1. TIM-OPHTAL 0.5% [Suspect]
     Indication: INTRAOCULAR PRESSURE TEST ABNORMAL
     Dosage: ONCE IN THE MORNING, ONCE IN THE EVENING
     Route: 047
     Dates: start: 201210
  2. INSULIN [Concomitant]
     Indication: TYPE 2 DIABETES MELLITUS
  3. SIMVASTATIN [Concomitant]
     Indication: PRODUCT USED FOR UNKNOWN INDICATION
  4. ATACAND [Concomitant]
     Indication: PRODUCT USED FOR UNKNOWN INDICATION
  5. AMLODIPIN [Concomitant]
     Indication: PRODUCT USED FOR UNKNOWN INDICATION

REACTIONS (5)
  - Angina pectoris [Recovered/Resolved]
  - Sensation of heaviness [Recovered/Resolved]
  - Eye irritation [Recovered/Resolved]
  - Heart rate decreased [Unknown]
  - Coronary artery disease [Recovered/Resolved]
